FAERS Safety Report 8234622-7 (Version None)
Quarter: 2012Q1

REPORT INFORMATION
  Report Type: 
  Country: None (occurrence: None)
  Receive Date: 20120322
  Receipt Date: 20120306
  Transmission Date: 20120608
  Serious: Yes (Other)
  Sender: FDA-Public Use
  Company Number: 2011SP058538

PATIENT
  Age: 23 Year
  Sex: Male

DRUGS (2)
  1. MIRTAZAPINE [Suspect]
     Indication: DEPRESSION
     Dosage: 60 MG;QD;PO  : 45 MG;QD
     Route: 048
     Dates: start: 20111218
  2. ZOPICLONE [Concomitant]

REACTIONS (4)
  - ANXIETY [None]
  - WEIGHT INCREASED [None]
  - AGGRESSION [None]
  - SWELLING FACE [None]
